FAERS Safety Report 8089365-X (Version None)
Quarter: 2012Q1

REPORT INFORMATION
  Report Type: 
  Country: None (occurrence: None)
  Receive Date: 20120128
  Receipt Date: 20110712
  Transmission Date: 20120608
  Serious: No
  Sender: FDA-Public Use
  Company Number: US-ABBOTT-11P-163-0838327-00

PATIENT
  Age: 35 Year
  Sex: Female

DRUGS (2)
  1. HUMIRA [Suspect]
     Indication: RHEUMATOID ARTHRITIS
     Dates: start: 20100101, end: 20100101
  2. HUMIRA [Suspect]
     Dates: start: 20110706

REACTIONS (5)
  - RASH [None]
  - INJECTION SITE NODULE [None]
  - NAUSEA [None]
  - BACK PAIN [None]
  - PRURITUS GENERALISED [None]
